FAERS Safety Report 6155001-2 (Version None)
Quarter: 2009Q2

REPORT INFORMATION
  Report Type: 
  Country: None (occurrence: None)
  Receive Date: 20090410
  Receipt Date: 20090401
  Transmission Date: 20091009
  Serious: Yes (Hospitalization)
  Sender: FDA-Public Use
  Company Number: GXKR2009CO04226

PATIENT
  Age: 52 Year
  Sex: Female

DRUGS (1)
  1. AMLIBON B (NGX) (AMLODIPINE, BENAZEPRIL) UNKNOWN [Suspect]
     Dosage: ORAL
     Route: 048

REACTIONS (1)
  - MYOCARDIAL INFARCTION [None]
